FAERS Safety Report 12914989 (Version 1)
Quarter: 2016Q4

REPORT INFORMATION
  Report Type: Report from Study
  Country: US (occurrence: US)
  Receive Date: 20161106
  Receipt Date: 20161106
  Transmission Date: 20170207
  Serious: Yes (Hospitalization, Other)
  Sender: FDA-Public Use
  Company Number: US-AMGEN-USASL2016152211

PATIENT
  Age: 76 Year
  Sex: Male

DRUGS (1)
  1. ENBREL [Suspect]
     Active Substance: ETANERCEPT
     Indication: PSORIATIC ARTHROPATHY
     Dosage: 50 MG, UNK
     Route: 065

REACTIONS (10)
  - Unevaluable event [Unknown]
  - Confusional state [Unknown]
  - Dehydration [Unknown]
  - Pneumonia [Unknown]
  - Urinary tract infection [Unknown]
  - Dysuria [Unknown]
  - Blood creatinine increased [Unknown]
  - Limb injury [Unknown]
  - Agitation [Unknown]
  - Fall [Unknown]

NARRATIVE: CASE EVENT DATE: 201609
